FAERS Safety Report 7492458-9 (Version None)
Quarter: 2011Q2

REPORT INFORMATION
  Report Type: 
  Country: None (occurrence: None)
  Receive Date: 20110519
  Receipt Date: 20110513
  Transmission Date: 20111010
  Serious: Yes (Death, Hospitalization, Other)
  Sender: FDA-Public Use
  Company Number: PHEH2007US05991

PATIENT
  Sex: Male

DRUGS (36)
  1. FEMARA [Concomitant]
     Dosage: 2.5MG
     Dates: start: 20030123
  2. MILK OF MAGNESIA TAB [Concomitant]
  3. METHOTREXATE [Concomitant]
  4. VICODIN [Concomitant]
  5. CLONIDINE [Concomitant]
  6. COUMADIN [Concomitant]
  7. AVASTIN [Concomitant]
     Indication: BREAST CANCER
  8. FIORICET [Concomitant]
  9. SENNA-MINT WAF [Concomitant]
  10. KETAMINE HCL [Concomitant]
  11. NYSTATIN [Concomitant]
  12. FENTANYL [Concomitant]
  13. MIDRIN [Concomitant]
     Dosage: AS NECESSARY
  14. FASLODEX [Concomitant]
     Dosage: UNK
     Dates: start: 20040101
  15. FIORINAL [Concomitant]
  16. LEVOXYL [Concomitant]
     Indication: HYPOTHYROIDISM
  17. TAMOXIFEN CITRATE [Concomitant]
  18. LIDOCAINE [Concomitant]
  19. NORTRIPTYLINE HCL [Concomitant]
  20. TAXOL [Concomitant]
  21. ZOMETA [Suspect]
     Dosage: 4MG
     Dates: start: 20030201, end: 20051201
  22. GABAPENTIN [Concomitant]
  23. MIRALAX [Concomitant]
  24. DOCUSATE [Concomitant]
  25. BUSPIRONE HCL [Concomitant]
  26. ZOFRAN [Concomitant]
  27. KYTRIL [Concomitant]
  28. MECLIZINE [Concomitant]
  29. IBUPROFEN [Concomitant]
  30. CODEINE SULFATE [Concomitant]
  31. NEURONTIN [Concomitant]
  32. STRONTIUM CHLORIDE SR-89 [Concomitant]
     Indication: BREAST CANCER
  33. MS CONTIN [Concomitant]
  34. PERCOCET [Concomitant]
  35. OXYCONTIN [Concomitant]
     Indication: PAIN
  36. LORTAB [Concomitant]

REACTIONS (48)
  - INJURY [None]
  - IMPAIRED HEALING [None]
  - METASTATIC PAIN [None]
  - HEADACHE [None]
  - CONSTIPATION [None]
  - METASTASES TO LUNG [None]
  - ALTERED STATE OF CONSCIOUSNESS [None]
  - AORTIC DILATATION [None]
  - VERTIGO POSITIONAL [None]
  - DECUBITUS ULCER [None]
  - NAUSEA [None]
  - VISION BLURRED [None]
  - LYMPHADENOPATHY [None]
  - ASTHMA [None]
  - PYREXIA [None]
  - BONE DISORDER [None]
  - VOMITING [None]
  - BREAST CANCER METASTATIC [None]
  - OPTIC NERVE NEOPLASM [None]
  - LEUKOPENIA [None]
  - BALANCE DISORDER [None]
  - DENTAL CARIES [None]
  - METASTASES TO BONE [None]
  - ARTHRALGIA [None]
  - THROMBOCYTOPENIA [None]
  - BRONCHITIS [None]
  - PAIN [None]
  - BACK PAIN [None]
  - ANAEMIA [None]
  - GAIT DISTURBANCE [None]
  - FATIGUE [None]
  - ASTHENIA [None]
  - THYROID DISORDER [None]
  - ATRIAL FIBRILLATION [None]
  - METASTASES TO PELVIS [None]
  - MUSCLE SPASMS [None]
  - DEATH [None]
  - OSTEONECROSIS OF JAW [None]
  - ANXIETY [None]
  - PERIODONTITIS [None]
  - PRIMARY SEQUESTRUM [None]
  - HYPERTENSION [None]
  - NEUTROPENIA [None]
  - METASTASES TO SPINE [None]
  - DISEASE PROGRESSION [None]
  - OEDEMA PERIPHERAL [None]
  - MYOCLONUS [None]
  - INSOMNIA [None]
